FAERS Safety Report 12786713 (Version 1)
Quarter: 2016Q3

REPORT INFORMATION
  Report Type: Spontaneous
  Country: US (occurrence: US)
  Receive Date: 20160927
  Receipt Date: 20160927
  Transmission Date: 20161109
  Serious: Yes (Other)
  Sender: FDA-Public Use
  Company Number: None

PATIENT
  Age: 43 Year
  Sex: Female
  Weight: 108 kg

DRUGS (1)
  1. DEPO-SUBQ PROVERA [Suspect]
     Active Substance: MEDROXYPROGESTERONE ACETATE
     Dosage: OTHER FREQUENCY:Q.12-14 WEEKS;?
     Route: 058
     Dates: start: 20160913, end: 20160913

REACTIONS (2)
  - Injury associated with device [None]
  - Needle issue [None]

NARRATIVE: CASE EVENT DATE: 20160913
